FAERS Safety Report 5293366-4 (Version None)
Quarter: 2007Q2

REPORT INFORMATION
  Report Type: 
  Country: None (occurrence: None)
  Receive Date: 20070411
  Receipt Date: 20070327
  Transmission Date: 20071010
  Serious: Yes (Other)
  Sender: FDA-Public Use
  Company Number: PHNU2007DE01348

PATIENT
  Sex: Female

DRUGS (1)
  1. COMBIPATCH [Suspect]
     Dosage: MATERNAL DOSE: 5 MG/DAY
     Route: 064
     Dates: start: 20021106, end: 20021118

REACTIONS (3)
  - DRUG EXPOSURE DURING PREGNANCY [None]
  - HAIR GROWTH ABNORMAL [None]
  - HORMONE LEVEL ABNORMAL [None]
